FAERS Safety Report 8616380-7 (Version None)
Quarter: 2012Q3

REPORT INFORMATION
  Report Type: 
  Country: None (occurrence: None)
  Receive Date: 20120823
  Receipt Date: 20120816
  Transmission Date: 20120928
  Serious: Yes (Hospitalization, Disabling, Other)
  Sender: FDA-Public Use
  Company Number: US-009507513-1006USA00660

PATIENT

DRUGS (4)
  1. FOSAMAX [Suspect]
     Indication: OSTEOPOROSIS
     Dosage: 5 MG, UNK
     Route: 048
     Dates: start: 19990716, end: 20010313
  2. FOSAMAX PLUS D [Suspect]
     Indication: OSTEOPOROSIS
     Dosage: 70 MG, QW
     Route: 048
     Dates: start: 20080126, end: 20080711
  3. FOSAMAX [Suspect]
     Indication: OSTEOPENIA
     Dosage: 70 MG, QW
     Route: 048
     Dates: start: 20010614, end: 20080611
  4. FOSAMAX PLUS D [Suspect]
     Indication: OSTEOPENIA

REACTIONS (34)
  - BONE DENSITY DECREASED [None]
  - LOOSE TOOTH [None]
  - WEIGHT DECREASED [None]
  - HYPERLIPIDAEMIA [None]
  - STRESS FRACTURE [None]
  - PLASMA PROTEIN METABOLISM DISORDER [None]
  - FEMUR FRACTURE [None]
  - INJURY [None]
  - NAUSEA [None]
  - HYPERTENSION [None]
  - PEPTIC ULCER [None]
  - BREAST MASS [None]
  - BLADDER MASS [None]
  - ANXIETY [None]
  - OSTEOPENIA [None]
  - UMBILICAL HERNIA [None]
  - BREAST CANCER RECURRENT [None]
  - GALLBLADDER DISORDER [None]
  - ANAEMIA [None]
  - HYPERGLYCAEMIA [None]
  - HYPOKALAEMIA [None]
  - BILIARY COLIC [None]
  - DRUG INEFFECTIVE [None]
  - FALL [None]
  - CONSTIPATION [None]
  - RASH [None]
  - DIVERTICULUM [None]
  - TOOTH DISORDER [None]
  - BLOOD CHOLESTEROL INCREASED [None]
  - RENAL CYST [None]
  - CLOSTRIDIUM DIFFICILE COLITIS [None]
  - OSTEOPOROSIS [None]
  - WRIST FRACTURE [None]
  - METASTASES TO BONE [None]
